FAERS Safety Report 15311960 (Version 1)
Quarter: 2018Q3

REPORT INFORMATION
  Report Type: Spontaneous
  Country: US (occurrence: US)
  Receive Date: 20180814
  Receipt Date: 20180814
  Transmission Date: 20181010
  Serious: No
  Sender: FDA-Public Use
  Company Number: None

PATIENT
  Age: 66 Year
  Sex: Female
  Weight: 55.79 kg

DRUGS (8)
  1. FORTEO [Suspect]
     Active Substance: TERIPARATIDE
     Indication: OSTEOPOROSIS
     Dosage: 20MCG UNDER THE SKIN INJECTION (1) DAILY   INJECTION
     Dates: start: 20180511, end: 20180728
  2. PROBIOTICS [Concomitant]
     Active Substance: PROBIOTICS NOS
  3. NEXIUM [Concomitant]
     Active Substance: ESOMEPRAZOLE MAGNESIUM
  4. VYTERIN [Concomitant]
  5. SUCRALFATE. [Concomitant]
     Active Substance: SUCRALFATE
  6. VITAMIN D [Concomitant]
     Active Substance: CHOLECALCIFEROL
  7. CALTRATE [Concomitant]
     Active Substance: CALCIUM CARBONATE
  8. BIOTIN [Concomitant]
     Active Substance: BIOTIN

REACTIONS (22)
  - Asthenia [None]
  - Migraine [None]
  - Nausea [None]
  - Vision blurred [None]
  - Syncope [None]
  - Urticaria [None]
  - Dizziness [None]
  - Palpitations [None]
  - Injection site bruising [None]
  - Erythema [None]
  - Injection site haemorrhage [None]
  - Fatigue [None]
  - Chest discomfort [None]
  - Tooth disorder [None]
  - Tooth loss [None]
  - Abdominal pain upper [None]
  - Headache [None]
  - Haematochezia [None]
  - Decreased appetite [None]
  - Abdominal pain [None]
  - Blood urine present [None]
  - Paraesthesia [None]

NARRATIVE: CASE EVENT DATE: 20180727
